FAERS Safety Report 10231939 (Version 1)
Quarter: 2014Q2

REPORT INFORMATION
  Report Type: Spontaneous
  Country: US (occurrence: US)
  Receive Date: 20140612
  Receipt Date: 20140612
  Transmission Date: 20141212
  Serious: No
  Sender: FDA-Public Use
  Company Number: US-BIOGENIDEC-2014BI055398

PATIENT
  Age: 52 Year
  Sex: Female

DRUGS (3)
  1. AVONEX [Suspect]
     Indication: PRODUCT USED FOR UNKNOWN INDICATION
     Route: 030
  2. GILENYA [Concomitant]
  3. COPAXONE [Concomitant]

REACTIONS (2)
  - Diarrhoea [Unknown]
  - Influenza like illness [Unknown]
